FAERS Safety Report 15273175 (Version 1)
Quarter: 2018Q4

REPORT INFORMATION
  Report Type: Spontaneous
  Country: US (occurrence: US)
  Receive Date: 20180813
  Receipt Date: 20180813
  Transmission Date: 20190204
  Serious: Yes (Other)
  Sender: FDA-Public Use
  Company Number: US-THE MENTHOLATUM COMPANY-2053646

PATIENT
  Age: 75 Year
  Sex: Female
  Weight: 54.55 kg

DRUGS (1)
  1. EQUATE CAPSAICIN PAIN RELIEVING [Suspect]
     Active Substance: CAPSAICIN
     Route: 061
     Dates: start: 20180722, end: 20180722

REACTIONS (1)
  - Skin irritation [Recovering/Resolving]

NARRATIVE: CASE EVENT DATE: 20180722
